FAERS Safety Report 19801229 (Version 2)
Quarter: 2023Q1

REPORT INFORMATION
  Report Type: Spontaneous
  Country: DE (occurrence: DE)
  Receive Date: 20210908
  Receipt Date: 20230118
  Transmission Date: 20230418
  Serious: Yes (Hospitalization)
  Sender: FDA-Public Use
  Company Number: DE-ADRED-07057-01

PATIENT
  Age: 86 Year
  Sex: Male

DRUGS (12)
  1. LANTUS [Suspect]
     Active Substance: INSULIN GLARGINE
     Dosage: 40 IU, QD
     Route: 058
  2. INSULIN LISPRO [Suspect]
     Active Substance: INSULIN LISPRO
     Dosage: UNK
     Route: 058
  3. PIPERACILLIN SODIUM\TAZOBACTAM SODIUM [Suspect]
     Active Substance: PIPERACILLIN SODIUM\TAZOBACTAM SODIUM
     Dosage: 4.5 G, DISCONTINUED ON 05052021, SOLUTION FOR INJECTION/INFUSION
     Route: 042
  4. PHENPROCOUMON [Suspect]
     Active Substance: PHENPROCOUMON
     Dosage: 3 MG
     Route: 048
  5. DIGITOXIN [Concomitant]
     Active Substance: DIGITOXIN
     Dosage: 0.07 MG, QD (0.07 MG, 1-0-0-0, TABLETS)
     Route: 048
  6. METRONIDAZOLE [Concomitant]
     Active Substance: METRONIDAZOLE
     Dosage: 400 MG, TID
     Route: 048
  7. SITAGLIPTIN [Concomitant]
     Active Substance: SITAGLIPTIN
     Dosage: BID (50 MG, 0.5-0-0.5-0, TABLET)
     Route: 048
  8. TAMSULOSIN [Concomitant]
     Active Substance: TAMSULOSIN
     Dosage: 0.4 MG, QD
     Route: 048
  9. TORSEMIDE [Concomitant]
     Active Substance: TORSEMIDE
     Dosage: BID (10 MG, 1-0-0.5-0, TABLETS)
     Route: 048
  10. CARVEDILOL [Concomitant]
     Active Substance: CARVEDILOL
     Dosage: BID (25 MG, 0.5-0-0-0.5, TABLETS)
     Route: 048
  11. CANDESARTAN [Concomitant]
     Active Substance: CANDESARTAN
     Dosage: QD (16 MG, 0.5-0-0-0, TABLETS)
     Route: 048
  12. METRONIDAZOLE [Concomitant]
     Active Substance: METRONIDAZOLE
     Dosage: 400 MG, THREE TIMES ONE TABLET BY THE END OF MAY THIS YEAR, TABLETS
     Route: 048

REACTIONS (6)
  - Diarrhoea [Unknown]
  - Anaemia [Unknown]
  - Dehydration [Unknown]
  - General physical health deterioration [Unknown]
  - Product monitoring error [Unknown]
  - Product prescribing error [Unknown]

NARRATIVE: CASE EVENT DATE: 20210620
